FAERS Safety Report 22269283 (Version 1)
Quarter: 2023Q2

REPORT INFORMATION
  Report Type: Other
  Country: JP (occurrence: None)
  Receive Date: 20230501
  Receipt Date: 20230501
  Transmission Date: 20230721
  Serious: Yes (Death)
  Sender: FDA-Public Use
  Company Number: JP-ROCHE-3340144

PATIENT

DRUGS (4)
  1. BEVACIZUMAB [Suspect]
     Active Substance: BEVACIZUMAB
     Indication: Colorectal cancer metastatic
     Route: 042
  2. FLUOROURACIL [Concomitant]
     Active Substance: FLUOROURACIL
     Dosage: ON DAY1
  3. LEUCOVORIN [Concomitant]
     Active Substance: LEUCOVORIN
     Dosage: ON DAY1
  4. OXALIPLATIN [Concomitant]
     Active Substance: OXALIPLATIN
     Dosage: ON DAY1

REACTIONS (1)
  - Respiratory failure [Fatal]
